FAERS Safety Report 9867839 (Version 1)
Quarter: 2014Q1

REPORT INFORMATION
  Report Type: Spontaneous
  Country: US (occurrence: None)
  Receive Date: 20140203
  Receipt Date: 20140203
  Transmission Date: 20141002
  Serious: No
  Sender: FDA-Public Use
  Company Number: None

PATIENT
  Age: 10 Year
  Sex: Female
  Weight: 54.43 kg

DRUGS (2)
  1. METHYLPHENIDATE ER [Suspect]
     Indication: CRANIOCEREBRAL INJURY
     Dosage: 1 CAPSULE QD PO
     Route: 048
  2. METHYLPHENIDATE ER [Suspect]
     Indication: ATTENTION DEFICIT/HYPERACTIVITY DISORDER
     Dosage: 1 CAPSULE QD PO
     Route: 048

REACTIONS (5)
  - Headache [None]
  - Irritability [None]
  - Drug effect decreased [None]
  - Product quality issue [None]
  - Product substitution issue [None]
